FAERS Safety Report 17591930 (Version 2)
Quarter: 2020Q2

REPORT INFORMATION
  Report Type: Report from Study
  Country: CO (occurrence: CO)
  Receive Date: 20200327
  Receipt Date: 20200409
  Transmission Date: 20200713
  Serious: Yes (Death, Hospitalization)
  Sender: FDA-Public Use
  Company Number: NVSC2020CO055720

PATIENT
  Age: 59 Year
  Sex: Female

DRUGS (1)
  1. VOTRIENT [Suspect]
     Active Substance: PAZOPANIB HYDROCHLORIDE
     Indication: METASTATIC RENAL CELL CARCINOMA
     Dosage: 400 MG, QD
     Route: 048

REACTIONS (12)
  - Depressed mood [Unknown]
  - Crying [Unknown]
  - Abdominal pain [Unknown]
  - Vomiting [Unknown]
  - Dry mouth [Unknown]
  - Renal failure [Unknown]
  - Inflammation [Unknown]
  - Pain [Unknown]
  - Death [Fatal]
  - Choking sensation [Unknown]
  - Malaise [Unknown]
  - Fluid retention [Unknown]

NARRATIVE: CASE EVENT DATE: 20200317
